FAERS Safety Report 9413369 (Version 1)
Quarter: 2013Q3

REPORT INFORMATION
  Report Type: Spontaneous
  Country: TR (occurrence: TR)
  Receive Date: 20130722
  Receipt Date: 20130722
  Transmission Date: 20140515
  Serious: Yes (Hospitalization)
  Sender: FDA-Public Use
  Company Number: TR-MYLANLABS-2013S1015410

PATIENT
  Age: 15 Year
  Sex: Female
  Weight: 44 kg

DRUGS (1)
  1. LEVOTHYROXINE SODIUM [Suspect]
     Indication: OVERDOSE
     Route: 048

REACTIONS (3)
  - Hyperthyroidism [Recovered/Resolved]
  - Suicide attempt [Recovered/Resolved]
  - Overdose [Recovered/Resolved]
